FAERS Safety Report 21301390 (Version 1)
Quarter: 2022Q3

REPORT INFORMATION
  Report Type: Spontaneous
  Country: US (occurrence: US)
  Receive Date: 20220907
  Receipt Date: 20220907
  Transmission Date: 20221027
  Serious: Yes (Other)
  Sender: FDA-Public Use
  Company Number: US-GLAND PHARMA LIMITED-2022US004106

PATIENT
  Age: 41 Year
  Sex: Male

DRUGS (4)
  1. VORICONAZOLE [Suspect]
     Active Substance: VORICONAZOLE
     Indication: Chorioretinitis
     Dosage: 150 MG, BID
     Route: 048
  2. VORICONAZOLE [Suspect]
     Active Substance: VORICONAZOLE
     Dosage: 0.1 MG/0.1 ML EVERY 3 DAYS
  3. AMPHOTERICIN B [Suspect]
     Active Substance: AMPHOTERICIN B
     Indication: Chorioretinitis
     Dosage: 400 MG, 3/WEEK (THREE TIMES PER WEEK)
     Route: 042
  4. AMPHOTERICIN B [Suspect]
     Active Substance: AMPHOTERICIN B
     Dosage: 5 UG/0.1 ML

REACTIONS (3)
  - Retinal detachment [Recovered/Resolved]
  - Incorrect route of product administration [Unknown]
  - Drug ineffective [Unknown]
